FAERS Safety Report 10262716 (Version 2)
Quarter: 2014Q2

REPORT INFORMATION
  Report Type: Report from Study
  Country: TR (occurrence: TR)
  Receive Date: 20140626
  Receipt Date: 20140626
  Transmission Date: 20141212
  Serious: Yes (Hospitalization, Other)
  Sender: FDA-Public Use
  Company Number: TR-ABBVIE-13P-161-1050885-00

PATIENT
  Age: 27 Year
  Sex: Male
  Weight: 63 kg

DRUGS (1)
  1. HUMIRA [Suspect]
     Indication: CROHN^S DISEASE
     Route: 058
     Dates: start: 20130103, end: 20130128

REACTIONS (3)
  - Tuberculosis [Recovered/Resolved]
  - Pneumonia [Recovered/Resolved]
  - Colectomy [Recovered/Resolved]
